FAERS Safety Report 22159626 (Version 2)
Quarter: 2023Q2

REPORT INFORMATION
  Report Type: Spontaneous
  Country: US (occurrence: US)
  Receive Date: 20230331
  Receipt Date: 20230626
  Transmission Date: 20230721
  Serious: No
  Sender: FDA-Public Use
  Company Number: US-SA-SAC20230329000151

PATIENT
  Sex: Female

DRUGS (1)
  1. DUPIXENT [Suspect]
     Active Substance: DUPILUMAB
     Dosage: 300 MG, OTHER
     Route: 058

REACTIONS (4)
  - Injection site pain [Recovered/Resolved]
  - Lack of injection site rotation [Recovered/Resolved]
  - Eyelid margin crusting [Unknown]
  - Condition aggravated [Unknown]
